FAERS Safety Report 25001779 (Version 3)
Quarter: 2025Q3

REPORT INFORMATION
  Report Type: Spontaneous
  Country: US (occurrence: US)
  Receive Date: 20250224
  Receipt Date: 20250818
  Transmission Date: 20251020
  Serious: No
  Sender: SANOFI AVENTIS
  Company Number: US-SA-2025SA054067

PATIENT
  Age: 43 Year
  Sex: Female

DRUGS (4)
  1. DUPIXENT [Suspect]
     Active Substance: DUPILUMAB
     Indication: Neurodermatitis
     Dosage: 300 MG, QOW
     Route: 058
     Dates: start: 20250202
  2. CLOBETASOL [Concomitant]
     Active Substance: CLOBETASOL
  3. TRETINOIN [Concomitant]
     Active Substance: TRETINOIN
  4. TRIAMCINOLONE [Concomitant]
     Active Substance: TRIAMCINOLONE

REACTIONS (6)
  - Weight decreased [Unknown]
  - Skin atrophy [Unknown]
  - Swelling [Recovering/Resolving]
  - Pruritus [Unknown]
  - Rash [Recovering/Resolving]
  - Incorrect dose administered [Unknown]

NARRATIVE: CASE EVENT DATE: 20250101
